FAERS Safety Report 11158180 (Version 1)
Quarter: 2015Q2

REPORT INFORMATION
  Report Type: Spontaneous
  Country: AU (occurrence: None)
  Receive Date: 20150601
  Receipt Date: 20150601
  Transmission Date: 20150821
  Serious: Yes (Other)
  Sender: FDA-Public Use
  Company Number: 2015-10548

PATIENT
  Age: 72 Year
  Sex: Male

DRUGS (1)
  1. EYLEA [Suspect]
     Active Substance: AFLIBERCEPT
     Indication: NEOVASCULAR AGE-RELATED MACULAR DEGENERATION
     Dosage: 6-12 WEEKLY
     Route: 031

REACTIONS (3)
  - Drug ineffective [None]
  - Cataract [None]
  - Visual impairment [None]

NARRATIVE: CASE EVENT DATE: 2015
